FAERS Safety Report 25248723 (Version 1)
Quarter: 2025Q2

REPORT INFORMATION
  Report Type: Report from Study
  Country: US (occurrence: US)
  Receive Date: 20250429
  Receipt Date: 20250429
  Transmission Date: 20250717
  Serious: Yes (Other)
  Sender: JOHNSON AND JOHNSON
  Company Number: US-JNJFOC-20250430257

PATIENT
  Age: 41 Year
  Sex: Female

DRUGS (3)
  1. SPRAVATO [Suspect]
     Active Substance: ESKETAMINE
     Indication: Depression
     Dosage: ^84 MG, 1 TOTAL DOSE^
     Route: 045
     Dates: start: 20250408, end: 20250408
  2. SPRAVATO [Suspect]
     Active Substance: ESKETAMINE
     Dosage: ^112 MG, 1 TOTAL DOSE^
     Route: 045
     Dates: start: 20250415, end: 20250415
  3. SPRAVATO [Suspect]
     Active Substance: ESKETAMINE
     Dosage: ^140 MG, 1 TOTAL DOSE^
     Route: 045
     Dates: start: 20250422, end: 20250422

REACTIONS (3)
  - Hallucination, visual [Recovered/Resolved]
  - Depressed mood [Recovered/Resolved]
  - Off label use [Unknown]

NARRATIVE: CASE EVENT DATE: 20250408
